FAERS Safety Report 10047120 (Version 1)
Quarter: 2014Q1

REPORT INFORMATION
  Report Type: Spontaneous
  Country: US (occurrence: US)
  Receive Date: 20140331
  Receipt Date: 20140331
  Transmission Date: 20141002
  Serious: No
  Sender: FDA-Public Use
  Company Number: US-MYLANLABS-2013S1009659

PATIENT
  Age: 49 Year
  Sex: Female
  Weight: 79.38 kg

DRUGS (4)
  1. FENTANYL TRANSDERMAL SYSTEM [Suspect]
     Indication: PAIN
     Dosage: CHANGED Q48H
     Route: 062
     Dates: start: 201302
  2. NEURONTIN [Concomitant]
     Indication: PAIN
     Route: 048
  3. FLEXERIL [Concomitant]
     Indication: PAIN
     Route: 048
  4. MAXZIDE [Concomitant]
     Indication: BLOOD PRESSURE INCREASED
     Dosage: 37.5MG/25MG
     Route: 048
     Dates: start: 2012

REACTIONS (3)
  - Drug ineffective [Recovered/Resolved]
  - Pain [Recovered/Resolved]
  - Muscle contractions involuntary [Recovered/Resolved]
